FAERS Safety Report 25325990 (Version 1)
Quarter: 2025Q2

REPORT INFORMATION
  Report Type: Spontaneous
  Country: US (occurrence: US)
  Receive Date: 20250516
  Receipt Date: 20250516
  Transmission Date: 20250717
  Serious: Yes (Other)
  Sender: LA JOLLA PHARMACEUTICAL
  Company Number: US-LA JOLLA PHARMA, LLC-2024-INNO-US000067

PATIENT

DRUGS (6)
  1. GIAPREZA [Suspect]
     Active Substance: ANGIOTENSIN II
     Indication: Hypotension
  2. GIAPREZA [Suspect]
     Active Substance: ANGIOTENSIN II
     Indication: Septic shock
  3. NOREPINEPHRINE [Concomitant]
     Active Substance: NOREPINEPHRINE
     Indication: Septic shock
  4. EPINEPHRINE [Concomitant]
     Active Substance: EPINEPHRINE
     Indication: Septic shock
  5. PHENYLEPHRINE [Concomitant]
     Active Substance: PHENYLEPHRINE
     Indication: Septic shock
  6. VASOPRESSIN [Concomitant]
     Active Substance: VASOPRESSIN
     Indication: Septic shock

REACTIONS (4)
  - Electrocardiogram ST segment elevation [Unknown]
  - Ventricular hypokinesia [Unknown]
  - Ejection fraction decreased [Recovering/Resolving]
  - Troponin increased [Unknown]
